FAERS Safety Report 18261696 (Version 1)
Quarter: 2020Q3

REPORT INFORMATION
  Report Type: Spontaneous
  Country: US (occurrence: US)
  Receive Date: 20200912
  Receipt Date: 20200912
  Transmission Date: 20201103
  Serious: Yes (Death, Hospitalization)
  Sender: FDA-Public Use
  Company Number: None

PATIENT
  Sex: Female
  Weight: 78.8 kg

DRUGS (6)
  1. DAUNORUBICIN [Concomitant]
     Active Substance: DAUNORUBICIN
  2. VINCRISTINE SULFATE. [Concomitant]
     Active Substance: VINCRISTINE SULFATE
  3. CYTARABINE. [Concomitant]
     Active Substance: CYTARABINE
  4. PREDNISONE. [Suspect]
     Active Substance: PREDNISONE
  5. METHOTREXATE. [Concomitant]
     Active Substance: METHOTREXATE
  6. PEG/L?ASPARAGINASE [Concomitant]
     Active Substance: PEGASPARGASE

REACTIONS (20)
  - Pulmonary oedema [None]
  - COVID-19 [None]
  - Febrile neutropenia [None]
  - Cardio-respiratory arrest [None]
  - Hypotension [None]
  - Nausea [None]
  - Gait inability [None]
  - Hyperglycaemia [None]
  - Vomiting [None]
  - Pyrexia [None]
  - Asymptomatic COVID-19 [None]
  - Staphylococcal sepsis [None]
  - Thrombocytopenia [None]
  - Encephalopathy [None]
  - Muscular weakness [None]
  - Respiratory failure [None]
  - Sinus tachycardia [None]
  - Mental status changes [None]
  - Angiopathy [None]
  - Thrombosis [None]

NARRATIVE: CASE EVENT DATE: 20200711
